FAERS Safety Report 13388217 (Version 1)
Quarter: 2017Q1

REPORT INFORMATION
  Report Type: Spontaneous
  Country: FR (occurrence: FR)
  Receive Date: 20170330
  Receipt Date: 20170330
  Transmission Date: 20170429
  Serious: Yes (Hospitalization)
  Sender: FDA-Public Use
  Company Number: FR-ASTRAZENECA-2017SE31039

PATIENT
  Age: 20799 Day
  Sex: Male

DRUGS (17)
  1. LASILIX [Concomitant]
     Active Substance: FUROSEMIDE
  2. SODIUM BICARBONATE. [Concomitant]
     Active Substance: SODIUM BICARBONATE
  3. UVEDOSE [Concomitant]
     Active Substance: CHOLECALCIFEROL
  4. MAG 2 [Concomitant]
     Active Substance: MAGNESIUM CHLORIDE
  5. MYFORTIC [Suspect]
     Active Substance: MYCOPHENOLATE SODIUM
     Indication: PROPHYLAXIS AGAINST TRANSPLANT REJECTION
     Route: 048
     Dates: start: 20161206
  6. LYRICA [Concomitant]
     Active Substance: PREGABALIN
  7. OROCAL [Concomitant]
     Active Substance: CALCIUM CARBONATE
  8. INEXIUM [Suspect]
     Active Substance: ESOMEPRAZOLE
     Indication: PROPHYLAXIS
     Route: 048
     Dates: start: 20160809, end: 20161206
  9. ROVALCYTE [Suspect]
     Active Substance: VALGANCICLOVIR HYDROCHLORIDE
     Indication: ANTIVIRAL PROPHYLAXIS
     Route: 048
     Dates: start: 20160809, end: 20161206
  10. TACROLIMUS. [Concomitant]
     Active Substance: TACROLIMUS
  11. TAHOR [Concomitant]
     Active Substance: ATORVASTATIN CALCIUM
  12. COVERSYL [Concomitant]
     Active Substance: PERINDOPRIL
  13. PARACETAMOL [Concomitant]
     Active Substance: ACETAMINOPHEN
     Dosage: AS REQUIRED
  14. UN-ALFA [Concomitant]
     Active Substance: ALFACALCIDOL
  15. MYFORTIC [Suspect]
     Active Substance: MYCOPHENOLATE SODIUM
     Indication: PROPHYLAXIS AGAINST TRANSPLANT REJECTION
     Route: 048
     Dates: start: 20160809
  16. BACTRIM [Concomitant]
     Active Substance: SULFAMETHOXAZOLE\TRIMETHOPRIM
  17. EUPRESSYL [Concomitant]
     Active Substance: URAPIDIL

REACTIONS (5)
  - Cytomegalovirus infection [Unknown]
  - Neutropenia [Recovered/Resolved]
  - Asthenia [Unknown]
  - Leukopenia [Recovered/Resolved]
  - Influenza [Unknown]

NARRATIVE: CASE EVENT DATE: 20161121
